FAERS Safety Report 5640326-7 (Version None)
Quarter: 2008Q1

REPORT INFORMATION
  Report Type: 
  Country: None (occurrence: None)
  Receive Date: 20080227
  Receipt Date: 20080218
  Transmission Date: 20080703
  Serious: Yes (Death)
  Sender: FDA-Public Use
  Company Number: US-BAXTER-2008BH001436

PATIENT
  Age: 72 Year
  Sex: Female
  Weight: 63 kg

DRUGS (21)
  1. HEPARIN SODIUM [Suspect]
     Indication: ANTICOAGULANT THERAPY
     Dosage: DOSE UNIT:UNKNOWN
     Route: 065
     Dates: start: 20040818, end: 20040818
  2. INTEGRILIN [Suspect]
     Indication: STENT PLACEMENT
     Route: 041
     Dates: start: 20040818, end: 20040818
  3. INTEGRILIN [Suspect]
     Route: 040
     Dates: start: 20040818, end: 20040818
  4. INTEGRILIN [Suspect]
     Route: 040
     Dates: start: 20040818, end: 20040818
  5. LOVENOX [Suspect]
     Indication: MYOCARDIAL INFARCTION
     Route: 058
     Dates: start: 20040818, end: 20040818
  6. TENECTEPLASE [Suspect]
     Indication: MYOCARDIAL INFARCTION
     Route: 042
     Dates: start: 20040818, end: 20040818
  7. ASPIRIN [Suspect]
     Indication: MYOCARDIAL INFARCTION
     Route: 065
     Dates: start: 20040818, end: 20040818
  8. PLAVIX [Suspect]
     Indication: MYOCARDIAL INFARCTION
     Route: 065
     Dates: start: 20040818, end: 20040818
  9. SODIUM CHLORIDE [Concomitant]
     Indication: DRUG USE FOR UNKNOWN INDICATION
     Dosage: DOSE UNIT:UNKNOWN
     Route: 065
     Dates: start: 20040818
  10. VERSED [Concomitant]
     Indication: DRUG USE FOR UNKNOWN INDICATION
     Dosage: DOSE UNIT:UNKNOWN
     Route: 065
     Dates: start: 20040818
  11. FENTANYL [Concomitant]
     Indication: DRUG USE FOR UNKNOWN INDICATION
     Dosage: DOSE UNIT:UNKNOWN
     Route: 065
     Dates: start: 20040818
  12. LOPRESSOR [Concomitant]
     Indication: DRUG USE FOR UNKNOWN INDICATION
     Dosage: DOSE UNIT:UNKNOWN
     Route: 065
  13. LIPITOR [Concomitant]
     Indication: DRUG USE FOR UNKNOWN INDICATION
     Dosage: DOSE UNIT:UNKNOWN
     Route: 065
  14. CAPTOPRIL [Concomitant]
     Indication: DRUG USE FOR UNKNOWN INDICATION
     Dosage: DOSE UNIT:UNKNOWN
     Route: 065
  15. PAXIL [Concomitant]
     Indication: DRUG USE FOR UNKNOWN INDICATION
     Dosage: DOSE UNIT:UNKNOWN
     Route: 065
  16. PROTONIX [Concomitant]
     Indication: DRUG USE FOR UNKNOWN INDICATION
     Dosage: DOSE UNIT:UNKNOWN
     Route: 065
  17. NITROGLYCERIN [Concomitant]
     Indication: DRUG USE FOR UNKNOWN INDICATION
     Dosage: DOSE UNIT:UNKNOWN
     Route: 065
  18. TYLENOL (CAPLET) [Concomitant]
     Indication: DRUG USE FOR UNKNOWN INDICATION
     Dosage: DOSE UNIT:UNKNOWN
     Route: 065
  19. AMBIEN [Concomitant]
     Indication: DRUG USE FOR UNKNOWN INDICATION
     Dosage: DOSE UNIT:UNKNOWN
     Route: 065
  20. COLACE [Concomitant]
     Indication: DRUG USE FOR UNKNOWN INDICATION
     Dosage: DOSE UNIT:UNKNOWN
     Route: 065
  21. DARVOCET-N 100 [Concomitant]
     Indication: DRUG USE FOR UNKNOWN INDICATION
     Dosage: DOSE UNIT:UNKNOWN
     Route: 065

REACTIONS (28)
  - AGITATION [None]
  - AORTIC ARTERIOSCLEROSIS [None]
  - AORTIC VALVE INCOMPETENCE [None]
  - ARTERIOSCLEROSIS CORONARY ARTERY [None]
  - BLOOD CULTURE POSITIVE [None]
  - BRONCHIOLITIS [None]
  - CARDIAC HYPERTROPHY [None]
  - CARDIOMEGALY [None]
  - CEREBRAL ARTERIOSCLEROSIS [None]
  - EXTRADURAL HAEMATOMA [None]
  - HAEMORRHAGE INTRACRANIAL [None]
  - HEPATIC STEATOSIS [None]
  - HYPERGLYCAEMIA [None]
  - HYPERPLASTIC CHOLECYSTOPATHY [None]
  - MENINGITIS VIRAL [None]
  - MITRAL VALVE INCOMPETENCE [None]
  - NEPHROSCLEROSIS [None]
  - PLEURAL ADHESION [None]
  - PNEUMONIA [None]
  - PULMONARY OEDEMA [None]
  - RENAL CYST [None]
  - SERRATIA INFECTION [None]
  - SPUTUM CULTURE POSITIVE [None]
  - STAPHYLOCOCCAL INFECTION [None]
  - SUBDURAL HAEMORRHAGE [None]
  - TACHYCARDIA [None]
  - TACHYPNOEA [None]
  - UTERINE LEIOMYOMA [None]
